FAERS Safety Report 17860286 (Version 1)
Quarter: 2020Q2

REPORT INFORMATION
  Report Type: Other
  Country: DE (occurrence: DE)
  Receive Date: 20200604
  Receipt Date: 20200604
  Transmission Date: 20200714
  Serious: Yes (Hospitalization, Other)
  Sender: FDA-Public Use
  Company Number: DE-VALIDUS PHARMACEUTICALS LLC-DE-2020VAL000441

PATIENT

DRUGS (4)
  1. CEFOTAXIME SODIUM [Suspect]
     Active Substance: CEFOTAXIME SODIUM
     Indication: URINARY TRACT INFECTION
     Dosage: UNK
     Route: 042
     Dates: start: 20190716, end: 20190722
  2. DEVIT [Concomitant]
     Indication: PRODUCT USED FOR UNKNOWN INDICATION
     Dosage: UNK
  3. CEFPODOXIME [Suspect]
     Active Substance: CEFPODOXIME
     Indication: ESCHERICHIA URINARY TRACT INFECTION
     Dosage: 40
     Route: 048
     Dates: start: 20190722, end: 20190724
  4. INFECTODIARRSTOP [Concomitant]
     Indication: PRODUCT USED FOR UNKNOWN INDICATION
     Dosage: UNK

REACTIONS (2)
  - Vomiting [Unknown]
  - Haematochezia [Unknown]

NARRATIVE: CASE EVENT DATE: 20190727
